FAERS Safety Report 9789941 (Version 1)
Quarter: 2013Q4

REPORT INFORMATION
  Report Type: Spontaneous
  Country: US (occurrence: None)
  Receive Date: 20131230
  Receipt Date: 20131230
  Transmission Date: 20140711
  Serious: Yes (Life-Threatening, Hospitalization, Disabling, Other)
  Sender: FDA-Public Use
  Company Number: None

PATIENT
  Age: 45 Year
  Sex: Female
  Weight: 45.36 kg

DRUGS (11)
  1. SYNTHROID [Suspect]
     Indication: THYROID DISORDER
     Dosage: 1/2 PILL
     Route: 048
     Dates: start: 20131224, end: 20131225
  2. SYNTHROID [Suspect]
     Indication: CARDIAC DISORDER
     Dosage: 1/2 PILL
     Route: 048
     Dates: start: 20131224, end: 20131225
  3. SYNTHROID [Suspect]
     Indication: NERVOUS SYSTEM DISORDER
     Dosage: 1/2 PILL
     Route: 048
     Dates: start: 20131224, end: 20131225
  4. ELTROXIN [Concomitant]
  5. MIRTAZAPINE [Concomitant]
  6. ZOPICLONE [Concomitant]
  7. CRESTOR [Concomitant]
  8. VITAMIN B2 [Concomitant]
  9. B12 [Concomitant]
  10. FOLIC ACID [Concomitant]
  11. IRON [Concomitant]

REACTIONS (12)
  - Dysgeusia [None]
  - Thirst [None]
  - Dysgeusia [None]
  - Paralysis [None]
  - Blood glucose increased [None]
  - Anaphylactic reaction [None]
  - Hypoaesthesia [None]
  - Paraesthesia [None]
  - Cardiac disorder [None]
  - Myalgia [None]
  - Chest pain [None]
  - Vitamin B2 deficiency [None]
